FAERS Safety Report 23787942 (Version 2)
Quarter: 2024Q2

REPORT INFORMATION
  Report Type: Report from Study
  Country: KR (occurrence: KR)
  Receive Date: 20240426
  Receipt Date: 20240531
  Transmission Date: 20240716
  Serious: Yes (Hospitalization)
  Sender: FDA-Public Use
  Company Number: KR-KOWA-24JP000828AA

PATIENT
  Age: 72 Year
  Sex: Male
  Weight: 73.5 kg

DRUGS (29)
  1. EZETIMIBE\PITAVASTATIN CALCIUM [Suspect]
     Active Substance: EZETIMIBE\PITAVASTATIN CALCIUM
     Indication: Hypercholesterolaemia
     Dosage: 1 DF, QD
     Route: 048
     Dates: start: 20230622, end: 20231101
  2. EZETIMIBE\PITAVASTATIN CALCIUM [Suspect]
     Active Substance: EZETIMIBE\PITAVASTATIN CALCIUM
     Dosage: 1 DF, QD
     Route: 048
     Dates: start: 20231109
  3. LIVALO [Suspect]
     Active Substance: PITAVASTATIN CALCIUM
     Indication: Hypercholesterolaemia
     Dosage: 2 MG, QD
     Route: 048
     Dates: start: 20230923, end: 20230926
  4. LIVALO [Suspect]
     Active Substance: PITAVASTATIN CALCIUM
     Dosage: 2 MG, QD
     Route: 048
     Dates: start: 20231009, end: 20231208
  5. DIGOXIN [Concomitant]
     Active Substance: DIGOXIN
     Indication: Cardiac failure congestive
     Dosage: 0.5 DF, QD
     Route: 048
     Dates: start: 20091020, end: 20231206
  6. WARFARIN [Concomitant]
     Active Substance: WARFARIN
     Indication: Atrial fibrillation
     Dosage: 4 MG, QD
     Route: 048
     Dates: start: 20190214, end: 20231206
  7. RENAMEZIN [Concomitant]
     Indication: Chronic kidney disease
     Dosage: 7 DF, BID
     Route: 048
     Dates: start: 20190422
  8. CEFUROXIME [Concomitant]
     Active Substance: CEFUROXIME
     Indication: Cardiac failure congestive
     Dosage: 40 MG, QD
     Route: 048
     Dates: start: 20200826, end: 20231206
  9. CEFUROXIME [Concomitant]
     Active Substance: CEFUROXIME
     Dosage: 40 MG, QD
     Route: 048
     Dates: start: 20230823, end: 20231208
  10. FEBUXOSTAT [Concomitant]
     Active Substance: FEBUXOSTAT
     Indication: Gout
     Dosage: 40 MG, QD
     Route: 048
     Dates: start: 20210701
  11. BISOPROLOL FUMARATE [Concomitant]
     Active Substance: BISOPROLOL FUMARATE
     Indication: Cardiac failure congestive
     Dosage: 1.25 MG, QD
     Route: 048
     Dates: start: 20220630, end: 20231206
  12. DAPAGLIFLOZIN [Concomitant]
     Active Substance: DAPAGLIFLOZIN
     Indication: Diabetes prophylaxis
     Dosage: 10 MG, QD
     Route: 048
     Dates: start: 20221215
  13. FEXORIN [FEBUXOSTAT] [Concomitant]
     Indication: Gout
     Dosage: 40 MG, QD
     Route: 048
     Dates: start: 20230923, end: 20230926
  14. FEXORIN [FEBUXOSTAT] [Concomitant]
     Dosage: UNK, UNK
     Route: 048
     Dates: start: 20231010, end: 20231208
  15. LASIX [Concomitant]
     Active Substance: FUROSEMIDE
     Indication: Cardiac failure congestive
     Dosage: 40 MG, QD
     Route: 048
     Dates: start: 20230923, end: 20230926
  16. LASIX [Concomitant]
     Active Substance: FUROSEMIDE
     Dosage: 40 MG, QD
     Route: 048
     Dates: start: 20231010, end: 20231208
  17. EZET [Concomitant]
     Indication: Hypercholesterolaemia
     Dosage: 10 MG, QD
     Route: 048
     Dates: start: 20230923, end: 20230926
  18. EZET [Concomitant]
     Dosage: 10 MG, QD
     Route: 048
     Dates: start: 20231010, end: 20231208
  19. K CAB [Concomitant]
     Indication: Gastrooesophageal reflux disease
     Dosage: 50 MG, QD
     Route: 048
     Dates: start: 20231013
  20. DULACKHAN EASY [Concomitant]
     Indication: Mitral valve disease mixed
     Dosage: UNK, TID
     Route: 048
     Dates: start: 20231013, end: 20231102
  21. MUCOPECT [AMBROXOL HYDROCHLORIDE] [Concomitant]
     Indication: Mitral valve disease mixed
     Dosage: 1 DF, TID
     Route: 048
     Dates: start: 20231013, end: 20231122
  22. DIETARY SUPPLEMENT\HERBALS\MILK THISTLE [Concomitant]
     Active Substance: MILK THISTLE
     Indication: Mitral valve disease mixed
     Dosage: 1 DF, BID
     Route: 048
     Dates: start: 20231013, end: 20231022
  23. ELIQUIS [Concomitant]
     Active Substance: APIXABAN
     Indication: Mitral valve disease mixed
     Dosage: 2.5 MG, BID
     Route: 048
     Dates: start: 20231014
  24. SUSPEN 8 HOURS ER [Concomitant]
     Indication: Mitral valve disease mixed
     Dosage: 650 MG, TID
     Route: 048
     Dates: start: 20231014, end: 20240216
  25. CORDARONE [Concomitant]
     Active Substance: AMIODARONE HYDROCHLORIDE
     Indication: Atrial fibrillation
     Dosage: 100 MG, QD
     Route: 048
     Dates: start: 20231015
  26. HERBALS [Concomitant]
     Active Substance: HERBALS
     Indication: Mitral valve disease mixed
     Dosage: 1 DF, TID
     Route: 048
     Dates: start: 20231017, end: 20231102
  27. NEURONTIN [Concomitant]
     Active Substance: GABAPENTIN
     Indication: Mitral valve disease mixed
     Dosage: 50 MG, TID
     Route: 048
     Dates: start: 20231018, end: 20231208
  28. NEURONTIN [Concomitant]
     Active Substance: GABAPENTIN
     Dosage: 100 MG, TID
     Route: 048
     Dates: start: 20231208, end: 20240119
  29. HARNAL [Concomitant]
     Active Substance: TAMSULOSIN HYDROCHLORIDE
     Indication: Prostatomegaly
     Dosage: 0.2 MG, QD
     Route: 048
     Dates: start: 20231021, end: 20231218

REACTIONS (3)
  - Loss of consciousness [Recovered/Resolved]
  - Duplicate therapy error [Unknown]
  - Duplicate therapy error [Unknown]

NARRATIVE: CASE EVENT DATE: 20231023
